FAERS Safety Report 17179078 (Version 1)
Quarter: 2019Q4

REPORT INFORMATION
  Report Type: Spontaneous
  Country: GR (occurrence: GR)
  Receive Date: 20191219
  Receipt Date: 20191219
  Transmission Date: 20200122
  Serious: Yes (Other)
  Sender: FDA-Public Use
  Company Number: GR-BAXTER-2019BAX025920

PATIENT
  Age: 78 Year
  Sex: Male
  Weight: 78 kg

DRUGS (8)
  1. RITUXIMAB. [Suspect]
     Active Substance: RITUXIMAB
     Dosage: 3 CYCLES
     Route: 065
     Dates: start: 20191029
  2. RITUXIMAB. [Suspect]
     Active Substance: RITUXIMAB
     Indication: DIFFUSE LARGE B-CELL LYMPHOMA
     Dosage: 6 CYCLES
     Route: 065
     Dates: start: 20190527, end: 20190910
  3. VINORELBINE [Suspect]
     Active Substance: VINORELBINE TARTRATE
     Indication: DIFFUSE LARGE B-CELL LYMPHOMA
     Dosage: 3 CYCLES
     Route: 065
     Dates: start: 20191029
  4. DOXIL [Suspect]
     Active Substance: DOXORUBICIN HYDROCHLORIDE
     Indication: DIFFUSE LARGE B-CELL LYMPHOMA
     Dosage: 6 CYCLES
     Route: 065
     Dates: start: 20190527, end: 20190910
  5. VINCRISTINE [Suspect]
     Active Substance: VINCRISTINE
     Indication: DIFFUSE LARGE B-CELL LYMPHOMA
     Dosage: 6 CYCLES
     Route: 065
     Dates: start: 20190527, end: 20190910
  6. ENDOXAN 1000 MG - POWDER FOR SOLUTION FOR INJECTION [Suspect]
     Active Substance: CYCLOPHOSPHAMIDE
     Indication: DIFFUSE LARGE B-CELL LYMPHOMA
     Dosage: 6 CYCLES
     Route: 065
     Dates: start: 20190527, end: 20190910
  7. GEMCITABINE. [Suspect]
     Active Substance: GEMCITABINE
     Indication: DIFFUSE LARGE B-CELL LYMPHOMA
     Dosage: 3 CYCLES
     Route: 065
     Dates: start: 20191029
  8. PREDNISOLONE. [Suspect]
     Active Substance: PREDNISOLONE
     Indication: DIFFUSE LARGE B-CELL LYMPHOMA
     Dosage: 6 CYCLES
     Route: 065
     Dates: start: 20190527, end: 20190910

REACTIONS (2)
  - Hypersplenism [Unknown]
  - Anaemia [Unknown]
